FAERS Safety Report 10751489 (Version 1)
Quarter: 2015Q1

REPORT INFORMATION
  Report Type: Spontaneous
  Country: US (occurrence: None)
  Receive Date: 20150126
  Receipt Date: 20150126
  Transmission Date: 20150721
  Serious: Yes (Hospitalization)
  Sender: FDA-Public Use
  Company Number: A-NJ2014-099770

PATIENT
  Age: 48 Year
  Sex: Male

DRUGS (5)
  1. REMODULIN [Concomitant]
     Active Substance: TREPROSTINIL
  2. ADCIRCA (TADALFIL) [Concomitant]
  3. TRACLEER [Suspect]
     Active Substance: BOSENTAN\BOSENTAN MONOHYDRATE
     Indication: PULMONARY HYPERTENSION
     Route: 048
  4. RIOCIGUAT (RIOCIGUAT) [Suspect]
     Active Substance: RIOCIGUAT
  5. COUMADIN (WARFARIN) [Concomitant]

REACTIONS (16)
  - Pain in extremity [None]
  - Abdominal pain [None]
  - Postoperative thoracic procedure complication [None]
  - Dizziness [None]
  - Headache [None]
  - Movement disorder [None]
  - Condition aggravated [None]
  - Disease complication [None]
  - Cough [None]
  - Fatigue [None]
  - Musculoskeletal chest pain [None]
  - Back pain [None]
  - Pollakiuria [None]
  - Pulmonary arterial hypertension [None]
  - Malaise [None]
  - Gastrointestinal pain [None]

NARRATIVE: CASE EVENT DATE: 20140521
